FAERS Safety Report 8339126-9 (Version None)
Quarter: 2012Q2

REPORT INFORMATION
  Report Type: 
  Country: None (occurrence: None)
  Receive Date: 20120507
  Receipt Date: 20120502
  Transmission Date: 20120825
  Serious: No
  Sender: FDA-Public Use
  Company Number: US-PFIZER INC-2012108088

PATIENT
  Sex: Male
  Weight: 113 kg

DRUGS (1)
  1. CELEBREX [Suspect]
     Indication: KNEE OPERATION
     Dosage: 200 MG, 2X/DAY
     Route: 048
     Dates: start: 19930101

REACTIONS (4)
  - BACK DISORDER [None]
  - BACK PAIN [None]
  - FALL [None]
  - BACK INJURY [None]
